FAERS Safety Report 9227400 (Version 1)
Quarter: 2013Q2

REPORT INFORMATION
  Report Type: Spontaneous
  Country: GB (occurrence: GB)
  Receive Date: 20130412
  Receipt Date: 20130412
  Transmission Date: 20140414
  Serious: Yes (Life-Threatening, Hospitalization, Other)
  Sender: FDA-Public Use
  Company Number: GB-PFIZER INC-2013114148

PATIENT
  Age: 51 Year
  Sex: Male
  Weight: 96.5 kg

DRUGS (9)
  1. SUNITINIB MALATE [Suspect]
     Indication: NEUROENDOCRINE TUMOUR
     Dosage: 25 MG, 1X/DAY
     Route: 048
     Dates: start: 201301, end: 201303
  2. BISOPROLOL [Concomitant]
  3. CYCLIZINE [Concomitant]
  4. DEXAMETHASONE [Concomitant]
  5. FLUCONAZOLE [Concomitant]
  6. HUMULIN [Concomitant]
  7. LANSOPRAZOLE [Concomitant]
  8. LOPERAMIDE [Concomitant]
  9. PARACETAMOL [Concomitant]

REACTIONS (3)
  - Lactic acidosis [Recovering/Resolving]
  - Diarrhoea [Unknown]
  - Vomiting [Unknown]
